FAERS Safety Report 6408599-0 (Version None)
Quarter: 2009Q4

REPORT INFORMATION
  Report Type: 
  Country: None (occurrence: None)
  Receive Date: 20091019
  Receipt Date: 20091008
  Transmission Date: 20100525
  Serious: Yes (Other)
  Sender: FDA-Public Use
  Company Number: ADR40832009

PATIENT
  Age: 11 Year
  Sex: Male

DRUGS (2)
  1. RISPERIDONE [Suspect]
     Dosage: 0.25 ML - 0.5 ML
  2. ATOMOXETINE HCL [Concomitant]

REACTIONS (1)
  - SPONTANEOUS PENILE ERECTION [None]
